FAERS Safety Report 8575220-5 (Version None)
Quarter: 2012Q3

REPORT INFORMATION
  Report Type: 
  Country: None (occurrence: None)
  Receive Date: 20120807
  Receipt Date: 20120730
  Transmission Date: 20120928
  Serious: Yes (Hospitalization)
  Sender: FDA-Public Use
  Company Number: US-INCYTE CORPORATION-2012IN001406

PATIENT
  Sex: Male

DRUGS (4)
  1. LEXAPRO [Concomitant]
  2. PREDNISONE [Concomitant]
  3. ALLOPURINOL [Concomitant]
  4. JAKAFI [Suspect]
     Indication: MYELOFIBROSIS
     Dosage: 15 MG, BID
     Route: 048

REACTIONS (4)
  - WEIGHT DECREASED [None]
  - DEHYDRATION [None]
  - PNEUMONIA [None]
  - HERNIA REPAIR [None]
